FAERS Safety Report 5649390-2 (Version None)
Quarter: 2008Q1

REPORT INFORMATION
  Report Type: 
  Country: None (occurrence: None)
  Receive Date: 20080304
  Receipt Date: 20070820
  Transmission Date: 20080703
  Serious: No
  Sender: FDA-Public Use
  Company Number: US-BAYER-US-2007-031194

PATIENT
  Age: 45 Year
  Sex: Female

DRUGS (1)
  1. MAGNEVIST [Suspect]
     Indication: NUCLEAR MAGNETIC RESONANCE IMAGING
     Dosage: UNIT DOSE: 13 ML
     Route: 042
     Dates: start: 20070628, end: 20070628

REACTIONS (3)
  - INJECTION SITE ERYTHEMA [None]
  - INJECTION SITE MASS [None]
  - SWELLING [None]
